FAERS Safety Report 15661664 (Version 2)
Quarter: 2018Q4

REPORT INFORMATION
  Report Type: Spontaneous
  Country: RU (occurrence: RU)
  Receive Date: 20181127
  Receipt Date: 20181228
  Transmission Date: 20190205
  Serious: Yes (Other)
  Sender: FDA-Public Use
  Company Number: RU-ASTRAZENECA-2018SF54938

PATIENT
  Age: 88 Year
  Sex: Female

DRUGS (1)
  1. BRILINTA [Suspect]
     Active Substance: TICAGRELOR
     Route: 048
     Dates: start: 201805

REACTIONS (5)
  - Chest pain [Unknown]
  - Dizziness [Unknown]
  - Blood pressure increased [Unknown]
  - Fatigue [Unknown]
  - Product quality issue [Unknown]
